FAERS Safety Report 24858697 (Version 1)
Quarter: 2025Q1

REPORT INFORMATION
  Report Type: Spontaneous
  Country: US (occurrence: US)
  Receive Date: 20250118
  Receipt Date: 20250118
  Transmission Date: 20250408
  Serious: No
  Sender: ROCHE
  Company Number: US-ROCHE-10000183004

PATIENT
  Age: 35 Year
  Sex: Female

DRUGS (2)
  1. VABYSMO [Suspect]
     Active Substance: FARICIMAB-SVOA
     Indication: Basal cell naevus syndrome
     Route: 065
  2. VABYSMO [Suspect]
     Active Substance: FARICIMAB-SVOA
     Indication: Basal cell naevus syndrome

REACTIONS (2)
  - Off label use [Unknown]
  - No adverse event [Unknown]
